FAERS Safety Report 23107126 (Version 1)
Quarter: 2023Q4

REPORT INFORMATION
  Report Type: Spontaneous
  Country: US (occurrence: US)
  Receive Date: 20231026
  Receipt Date: 20231026
  Transmission Date: 20240109
  Serious: No
  Sender: FDA-Public Use
  Company Number: US-ASCENDIS PHARMA-2023US002626

PATIENT

DRUGS (3)
  1. SKYTROFA [Suspect]
     Active Substance: LONAPEGSOMATROPIN-TCGD
     Indication: Growth hormone deficiency
     Dosage: 15.2 MILLIGRAM, WEEKLY
     Route: 058
  2. SKYTROFA [Suspect]
     Active Substance: LONAPEGSOMATROPIN-TCGD
     Indication: Hypopituitarism
  3. TESTOSTERONE CYPIONATE [Concomitant]
     Active Substance: TESTOSTERONE CYPIONATE
     Indication: Product used for unknown indication
     Dosage: UNK

REACTIONS (2)
  - Product dose omission issue [Unknown]
  - Device use error [Unknown]

NARRATIVE: CASE EVENT DATE: 20230531
